FAERS Safety Report 11262061 (Version 1)
Quarter: 2015Q3

REPORT INFORMATION
  Report Type: Spontaneous
  Country: JP (occurrence: JP)
  Receive Date: 20150710
  Receipt Date: 20150710
  Transmission Date: 20151125
  Serious: Yes (Other)
  Sender: FDA-Public Use
  Company Number: JP-ELI_LILLY_AND_COMPANY-JP201506004458

PATIENT
  Age: 80 Year
  Sex: Male

DRUGS (3)
  1. FORTEO [Suspect]
     Active Substance: TERIPARATIDE
     Indication: OSTEOPOROSIS
     Dosage: UNK
     Route: 058
     Dates: start: 20131203, end: 201403
  2. CELECOX [Concomitant]
     Active Substance: CELECOXIB
  3. GASTER [Concomitant]
     Active Substance: FAMOTIDINE

REACTIONS (1)
  - Extraskeletal ossification [Recovered/Resolved]

NARRATIVE: CASE EVENT DATE: 201312
